FAERS Safety Report 6644714-1 (Version None)
Quarter: 2010Q1

REPORT INFORMATION
  Report Type: 
  Country: None (occurrence: None)
  Receive Date: 20100305
  Receipt Date: 20100219
  Transmission Date: 20100710
  Serious: No
  Sender: FDA-Public Use
  Company Number: 2010-00273

PATIENT
  Age: 53 Year
  Sex: Male
  Weight: 77.1115 kg

DRUGS (6)
  1. ZICAM ALLERGY RELIEF GEL SWABS [Suspect]
     Dosage: QD - 1 WEEK
     Dates: start: 20100129, end: 20100205
  2. LOTREL [Concomitant]
  3. TOPROL-XL [Concomitant]
  4. PERFECT GREEN MULTIVITAMIN [Concomitant]
  5. SUPER RED CRILL OIL [Concomitant]
  6. ESTER C [Concomitant]

REACTIONS (2)
  - AGEUSIA [None]
  - ANOSMIA [None]
